FAERS Safety Report 4781591-8 (Version None)
Quarter: 2005Q3

REPORT INFORMATION
  Report Type: 
  Country: None (occurrence: None)
  Receive Date: 20050927
  Receipt Date: 20050920
  Transmission Date: 20060218
  Serious: Yes (Hospitalization)
  Sender: FDA-Public Use
  Company Number: DEWYE922922AUG05

PATIENT
  Age: 60 Year
  Sex: Male

DRUGS (2)
  1. TREVILOR RETARD (VENLAFAXINE HYDROCHLORIDE, CAPSULE, EXTENDED RELEASE) [Suspect]
     Dosage: SEE IMAGE
     Route: 048
     Dates: start: 20050814, end: 20050816
  2. TREVILOR RETARD (VENLAFAXINE HYDROCHLORIDE, CAPSULE, EXTENDED RELEASE) [Suspect]
     Dosage: SEE IMAGE
     Route: 048
     Dates: start: 20050817

REACTIONS (9)
  - ANXIETY [None]
  - ASTHENIA [None]
  - CONDITION AGGRAVATED [None]
  - DEPRESSED LEVEL OF CONSCIOUSNESS [None]
  - DEPRESSION [None]
  - DIFFICULTY IN WALKING [None]
  - FACIAL SPASM [None]
  - SOCIAL AVOIDANT BEHAVIOUR [None]
  - TREMOR [None]
